FAERS Safety Report 18661465 (Version 2)
Quarter: 2020Q4

REPORT INFORMATION
  Report Type: Spontaneous
  Country: JP (occurrence: JP)
  Receive Date: 20201224
  Receipt Date: 20201229
  Transmission Date: 20210114
  Serious: No
  Sender: FDA-Public Use
  Company Number: JP-PFIZER INC-2020508920

PATIENT
  Age: 8 Decade
  Sex: Male

DRUGS (1)
  1. VIZIMPRO [Suspect]
     Active Substance: DACOMITINIB
     Dosage: UNK
     Dates: start: 202012

REACTIONS (1)
  - Cutaneous symptom [Unknown]
